FAERS Safety Report 8007070-2 (Version None)
Quarter: 2011Q4

REPORT INFORMATION
  Report Type: 
  Country: None (occurrence: None)
  Receive Date: 20111227
  Receipt Date: 20111220
  Transmission Date: 20120403
  Serious: Yes (Hospitalization)
  Sender: FDA-Public Use
  Company Number: FR-PFIZER INC-2011308232

PATIENT
  Age: 35 Year
  Sex: Female

DRUGS (3)
  1. EFFEXOR XR [Suspect]
     Dosage: 75 MG DAILY
     Route: 048
  2. ZYPREXA [Suspect]
     Dosage: 5 MG DAILY
     Route: 048
     Dates: end: 20111101
  3. ZYPREXA [Suspect]
     Dosage: 10 MG DAILY
     Route: 048
     Dates: start: 20111101

REACTIONS (1)
  - GESTATIONAL DIABETES [None]
